FAERS Safety Report 5564192-3 (Version None)
Quarter: 2007Q4

REPORT INFORMATION
  Report Type: 
  Country: None (occurrence: None)
  Receive Date: 20071212
  Receipt Date: 20071129
  Transmission Date: 20080405
  Serious: Yes (Hospitalization)
  Sender: FDA-Public Use
  Company Number: 230776J07USA

PATIENT
  Age: 63 Year
  Sex: Female

DRUGS (3)
  1. REBIF [Suspect]
     Indication: MULTIPLE SCLEROSIS
     Dosage: 44 MCG, 3 IN 1 WEEKS, SUBCUTANEOUS
     Route: 058
     Dates: start: 20060731
  2. XANAX [Suspect]
     Dates: end: 20070101
  3. XANAX [Suspect]
     Dates: start: 20070101

REACTIONS (5)
  - DUODENAL PERFORATION [None]
  - DUODENAL POLYP [None]
  - HALLUCINATION [None]
  - IATROGENIC INJURY [None]
  - PARANOIA [None]
